FAERS Safety Report 5071298-4 (Version None)
Quarter: 2006Q3

REPORT INFORMATION
  Report Type: 
  Country: None (occurrence: None)
  Receive Date: 20060804
  Receipt Date: 20060419
  Transmission Date: 20061208
  Serious: Yes (Other)
  Sender: FDA-Public Use
  Company Number: FR-ROCHE-445178

PATIENT
  Age: 41 Year
  Sex: Female

DRUGS (3)
  1. ROCEPHIN [Suspect]
     Indication: RENAL ABSCESS
     Route: 058
     Dates: start: 20060128, end: 20060215
  2. OFLOCET [Suspect]
     Indication: RENAL ABSCESS
     Route: 030
     Dates: start: 20060128, end: 20060209
  3. OFLOCET [Suspect]
     Route: 030
     Dates: start: 20060218

REACTIONS (8)
  - BLOOD CREATINE PHOSPHOKINASE INCREASED [None]
  - DRUG INTERACTION [None]
  - FATIGUE [None]
  - HYPERAESTHESIA [None]
  - HYPERREFLEXIA [None]
  - HYPOAESTHESIA [None]
  - MYALGIA [None]
  - UNEVALUABLE EVENT [None]
